FAERS Safety Report 5420923-4 (Version None)
Quarter: 2007Q3

REPORT INFORMATION
  Report Type: 
  Country: None (occurrence: None)
  Receive Date: 20070817
  Receipt Date: 20070817
  Transmission Date: 20080115
  Serious: Yes (Other)
  Sender: FDA-Public Use
  Company Number: None

PATIENT
  Age: 79 Year
  Sex: Female
  Weight: 51.7101 kg

DRUGS (1)
  1. MIRAPEX [Suspect]
     Indication: PARKINSON'S DISEASE
     Dosage: 0.125MG TAB 3 TIMES PER DAY PO
     Route: 048
     Dates: start: 20070411, end: 20070418

REACTIONS (15)
  - ABNORMAL BEHAVIOUR [None]
  - BALANCE DISORDER [None]
  - CONFUSIONAL STATE [None]
  - DEPRESSED LEVEL OF CONSCIOUSNESS [None]
  - DISORIENTATION [None]
  - DIZZINESS [None]
  - DYSKINESIA [None]
  - HALLUCINATION [None]
  - HALLUCINATION, VISUAL [None]
  - MENTAL IMPAIRMENT [None]
  - MOOD ALTERED [None]
  - PERSONALITY CHANGE [None]
  - SLEEP TALKING [None]
  - SOMNOLENCE [None]
  - SPEECH DISORDER [None]
